FAERS Safety Report 8297750-6 (Version None)
Quarter: 2012Q2

REPORT INFORMATION
  Report Type: 
  Country: None (occurrence: None)
  Receive Date: 20120419
  Receipt Date: 20120410
  Transmission Date: 20120825
  Serious: Yes (Hospitalization)
  Sender: FDA-Public Use
  Company Number: NZ-B.I. PHARMACEUTICALS,INC./RIDGEFIELD-2012-EU-02065GD

PATIENT
  Age: 64 Year
  Sex: Male
  Weight: 110 kg

DRUGS (8)
  1. OMEPRAZOLE [Concomitant]
  2. CARVEDILOL [Concomitant]
  3. SPIRONOLACTONE [Concomitant]
  4. DABIGATRAN [Suspect]
     Indication: ATRIAL FIBRILLATION
     Dosage: 300 MG
  5. FUROSEMIDE [Concomitant]
  6. CILAZAPRIL [Concomitant]
  7. ATORVASTATIN [Concomitant]
  8. METFORMIN HCL [Concomitant]

REACTIONS (2)
  - THROMBOSIS [None]
  - RECTAL HAEMORRHAGE [None]
